FAERS Safety Report 8283541-9 (Version None)
Quarter: 2012Q2

REPORT INFORMATION
  Report Type: 
  Country: None (occurrence: None)
  Receive Date: 20120413
  Receipt Date: 20120404
  Transmission Date: 20120825
  Serious: Yes (Other)
  Sender: FDA-Public Use
  Company Number: US-ASTRAZENECA-2011SE77542

PATIENT
  Age: 86 Year
  Sex: Female
  Weight: 58.5 kg

DRUGS (1)
  1. NEXIUM [Suspect]
     Indication: GASTROINTESTINAL ARTERIOVENOUS MALFORMATION
     Route: 048
     Dates: start: 20070314

REACTIONS (1)
  - GASTROINTESTINAL HAEMORRHAGE [None]
